FAERS Safety Report 14302588 (Version 1)
Quarter: 2017Q4

REPORT INFORMATION
  Report Type: Spontaneous
  Country: US (occurrence: US)
  Receive Date: 20171219
  Receipt Date: 20171219
  Transmission Date: 20180321
  Serious: Yes (Other)
  Sender: FDA-Public Use
  Company Number: None

PATIENT
  Sex: Male
  Weight: 78.75 kg

DRUGS (20)
  1. GINKO BILOBA [Concomitant]
     Active Substance: GINKGO
  2. TRANS-PTEROSTILBENE [Concomitant]
  3. MULTIHANCE [Suspect]
     Active Substance: GADOBENATE DIMEGLUMINE
     Indication: NUCLEAR MAGNETIC RESONANCE IMAGING
     Dosage: ?          QUANTITY:13 CC;OTHER FREQUENCY:SINGLE DOSE;?
     Route: 042
     Dates: start: 20120501, end: 20120501
  4. MULTIHANCE [Suspect]
     Active Substance: GADOBENATE DIMEGLUMINE
     Indication: SCAN WITH CONTRAST
     Dosage: ?          QUANTITY:13 CC;OTHER FREQUENCY:SINGLE DOSE;?
     Route: 042
     Dates: start: 20120501, end: 20120501
  5. ALFUZOSIN [Concomitant]
     Active Substance: ALFUZOSIN
  6. BENEFIBER [Concomitant]
     Active Substance: STARCH, WHEAT
  7. ASA [Concomitant]
     Active Substance: ASPIRIN
  8. VITAMIN C [Concomitant]
     Active Substance: ASCORBIC ACID
  9. FISH OIL [Concomitant]
     Active Substance: FISH OIL
  10. FLUTICASONE. [Concomitant]
     Active Substance: FLUTICASONE
  11. FOLIC ACID. [Concomitant]
     Active Substance: FOLIC ACID
  12. VITAMIN B12 [Concomitant]
     Active Substance: CYANOCOBALAMIN
  13. DHEA [Concomitant]
     Active Substance: PRASTERONE
  14. ALLERGY VACCINE [Concomitant]
  15. ACIDOPHILUS [Concomitant]
     Active Substance: LACTOBACILLUS ACIDOPHILUS
  16. VIT D-3 [Concomitant]
  17. DHA [Concomitant]
     Active Substance: DIETARY SUPPLEMENT
  18. SALMON OIL [Concomitant]
     Active Substance: FISH OIL
  19. MVM [Concomitant]
  20. RESERVATROL [Concomitant]

REACTIONS (1)
  - Renal cyst [None]

NARRATIVE: CASE EVENT DATE: 20171207
